FAERS Safety Report 17273296 (Version 1)
Quarter: 2020Q1

REPORT INFORMATION
  Report Type: Spontaneous
  Country: PT (occurrence: PT)
  Receive Date: 20200115
  Receipt Date: 20200115
  Transmission Date: 20200409
  Serious: No
  Sender: FDA-Public Use
  Company Number: PT-BEH-2020111362

PATIENT
  Sex: Female

DRUGS (2)
  1. RHOPHYLAC [Suspect]
     Active Substance: HUMAN RHO(D) IMMUNE GLOBULIN
     Indication: PROPHYLAXIS AGAINST RH ISOIMMUNISATION
     Dosage: 1500 INTERNATIONAL UNIT, TOT
     Route: 065
     Dates: start: 20191227, end: 20191227
  2. RHOPHYLAC [Suspect]
     Active Substance: HUMAN RHO(D) IMMUNE GLOBULIN
     Indication: PROPHYLAXIS AGAINST RH ISOIMMUNISATION
     Dosage: 1500 INTERNATIONAL UNIT, TOT
     Route: 065
     Dates: start: 20191227, end: 20191227

REACTIONS (3)
  - No adverse event [Unknown]
  - Product storage error [Unknown]
  - Product dispensing error [Unknown]
